FAERS Safety Report 9846468 (Version 1)
Quarter: 2013Q4

REPORT INFORMATION
  Report Type: Spontaneous
  Country: US (occurrence: None)
  Receive Date: 20131223
  Receipt Date: 20131223
  Transmission Date: 20140711
  Serious: Yes (Other)
  Sender: FDA-Public Use
  Company Number: CABO-13003394

PATIENT
  Age: 52 Year
  Sex: Male

DRUGS (1)
  1. COMETRIQ [Suspect]
     Indication: HEPATIC CANCER
     Route: 048
     Dates: start: 20130718, end: 20131031

REACTIONS (5)
  - Exposed bone in jaw [None]
  - Nausea [None]
  - Decreased appetite [None]
  - Fatigue [None]
  - Off label use [None]
